FAERS Safety Report 15244334 (Version 1)
Quarter: 2018Q3

REPORT INFORMATION
  Report Type: Spontaneous
  Country: US (occurrence: US)
  Receive Date: 20180712
  Receipt Date: 20180712
  Transmission Date: 20181010
  Serious: No
  Sender: FDA-Public Use
  Company Number: None

PATIENT
  Age: 60 Year
  Sex: Male
  Weight: 95.1 kg

DRUGS (3)
  1. DEXAMETHASONE. [Suspect]
     Active Substance: DEXAMETHASONE
     Dates: start: 20180706, end: 20180710
  2. LENALIDOMIDE (CC??5013) [Suspect]
     Active Substance: LENALIDOMIDE
     Dates: start: 20180706, end: 20180711
  3. VELCADE [Suspect]
     Active Substance: BORTEZOMIB
     Dates: start: 20180706, end: 20180709

REACTIONS (1)
  - Pain [None]
